FAERS Safety Report 17372028 (Version 1)
Quarter: 2020Q1

REPORT INFORMATION
  Report Type: Spontaneous
  Country: IN (occurrence: IN)
  Receive Date: 20200205
  Receipt Date: 20200205
  Transmission Date: 20200409
  Serious: Yes (Life-Threatening, Hospitalization)
  Sender: FDA-Public Use
  Company Number: IN-MYLANLABS-2020M1012354

PATIENT
  Age: 34 Year
  Sex: Female

DRUGS (8)
  1. ROPIVACAINE. [Suspect]
     Active Substance: ROPIVACAINE HYDROCHLORIDE
     Indication: ANALGESIC THERAPY
     Route: 042
  2. LIGNOCAINE                         /00033401/ [Suspect]
     Active Substance: LIDOCAINE HYDROCHLORIDE
     Indication: EPIDURAL ANALGESIA
     Dosage: 3 ML OF 2% LIDOCAINE WITH EPINEPHRINE AS TEST DOSE
     Route: 008
  3. OXYTOCIN. [Suspect]
     Active Substance: OXYTOCIN
     Indication: LABOUR INDUCTION
     Dosage: UNK
     Route: 042
  4. EPINEPHRINE. [Suspect]
     Active Substance: EPINEPHRINE
     Indication: EPIDURAL ANAESTHESIA
  5. LIGNOCAINE                         /00033401/ [Suspect]
     Active Substance: LIDOCAINE HYDROCHLORIDE
     Indication: EPIDURAL ANAESTHESIA
     Dosage: 10ML OF 2% LIDOCAINE WITH EPINEPHRINE
     Route: 008
  6. EPINEPHRINE. [Suspect]
     Active Substance: EPINEPHRINE
     Indication: EPIDURAL ANALGESIA
     Dosage: UNK
     Route: 008
  7. LIGNOCAINE                         /00033401/ [Suspect]
     Active Substance: LIDOCAINE HYDROCHLORIDE
     Dosage: 5ML BOLUS OF 2% LIDOCAINE WITH EPINEPHRINE
     Route: 008
  8. ROPIVACAINE. [Suspect]
     Active Substance: ROPIVACAINE HYDROCHLORIDE
     Dosage: 3ML BOLUS OF 0.15% ROPIVACAINE.
     Route: 042

REACTIONS (3)
  - Hypotension [Recovered/Resolved]
  - Maternal exposure during pregnancy [Recovered/Resolved]
  - Uterine rupture [Recovered/Resolved]
